FAERS Safety Report 5025700-4 (Version None)
Quarter: 2006Q2

REPORT INFORMATION
  Report Type: 
  Country: None (occurrence: None)
  Receive Date: 20060614
  Receipt Date: 20060605
  Transmission Date: 20061013
  Serious: Yes (Other)
  Sender: FDA-Public Use
  Company Number: US-JNJFOC-20051005736

PATIENT
  Sex: Male
  Weight: 87.54 kg

DRUGS (17)
  1. RISPERDAL [Suspect]
     Route: 048
  2. RISPERDAL [Suspect]
     Route: 048
  3. RISPERDAL [Suspect]
     Dosage: 1.5 MG DAILY AT BEDTIME, ALTERNATING WITH 1 MG DAILY AT BEDTIME
     Route: 048
  4. RISPERDAL [Suspect]
     Dosage: 1.5 TO 2 MG DAILY AT BEDTIME
     Route: 048
  5. RISPERDAL [Suspect]
     Dosage: AT BEDTIME
     Route: 048
  6. RISPERDAL [Suspect]
     Dosage: AT BEDTIME
     Route: 048
  7. RISPERDAL [Suspect]
     Dosage: AT BEDTIME
     Route: 048
  8. RISPERDAL [Suspect]
     Dosage: AT BEDTIME
     Route: 048
  9. RISPERDAL [Suspect]
     Dosage: AT BEDTIME
     Route: 048
  10. RISPERDAL [Suspect]
     Indication: PSYCHOTIC DISORDER
     Route: 048
  11. DIPHENHYRAMINE [Concomitant]
     Route: 048
  12. DIPHENHYRAMINE [Concomitant]
     Route: 048
  13. DIPHENHYRAMINE [Concomitant]
     Route: 048
  14. DIPHENHYRAMINE [Concomitant]
     Route: 048
  15. DIPHENHYRAMINE [Concomitant]
     Dosage: AT BEDTIME
     Route: 048
  16. DICLOFENAC POTASSIUM [Concomitant]
     Route: 048
  17. ETODOLAC [Concomitant]
     Route: 048

REACTIONS (7)
  - ABNORMAL BEHAVIOUR [None]
  - DIABETES MELLITUS INSULIN-DEPENDENT [None]
  - EXCESSIVE MASTURBATION [None]
  - FLAT AFFECT [None]
  - IRRITABILITY [None]
  - SEDATION [None]
  - TREMOR [None]
